FAERS Safety Report 18371561 (Version 5)
Quarter: 2021Q1

REPORT INFORMATION
  Report Type: Spontaneous
  Country: TW (occurrence: TW)
  Receive Date: 20201012
  Receipt Date: 20210113
  Transmission Date: 20210419
  Serious: Yes (Death, Hospitalization, Other)
  Sender: FDA-Public Use
  Company Number: TW-VIIV HEALTHCARE LIMITED-TW2020APC199229

PATIENT
  Age: 27 Year
  Sex: Male
  Weight: 60 kg

DRUGS (14)
  1. TRIUMEQ [Suspect]
     Active Substance: ABACAVIR SULFATE\DOLUTEGRAVIR SODIUM\LAMIVUDINE
     Indication: HIV INFECTION
     Dosage: 1 DF, QD
     Route: 048
     Dates: start: 20200810, end: 20200823
  2. CEFEPIME [Suspect]
     Active Substance: CEFEPIME HYDROCHLORIDE
     Dosage: 1 G, QD
     Dates: start: 20200822
  3. LORAZEPAM. [Concomitant]
     Active Substance: LORAZEPAM
     Indication: PRODUCT USED FOR UNKNOWN INDICATION
     Dosage: 0.5 MG AS NEEDED AT NIGHT
  4. TRANEXAMIC ACID. [Concomitant]
     Active Substance: TRANEXAMIC ACID
     Indication: PRODUCT USED FOR UNKNOWN INDICATION
     Dosage: 500 MG, BID
  5. SEVATRIM [Suspect]
     Active Substance: SULFAMETHOXAZOLE\TRIMETHOPRIM
     Indication: PRODUCT USED FOR UNKNOWN INDICATION
     Dosage: 1600/320, EVERY 8 HOURS
     Dates: start: 20200821, end: 20200824
  6. PANTOPRAZOLE [Concomitant]
     Active Substance: PANTOPRAZOLE
     Indication: PRODUCT USED FOR UNKNOWN INDICATION
     Dosage: 40 MG
  7. CEFEPIME [Suspect]
     Active Substance: CEFEPIME HYDROCHLORIDE
     Indication: PRODUCT USED FOR UNKNOWN INDICATION
     Dosage: 2 G, Z EVERY 8 HOURS
     Dates: start: 20200822
  8. FLUMARIN (FLOMOXEF) [Suspect]
     Active Substance: FLOMOXEF SODIUM
     Indication: PRODUCT USED FOR UNKNOWN INDICATION
     Dosage: 1 G, QID
     Dates: start: 20200821, end: 20200822
  9. FLUCONAZOLE. [Suspect]
     Active Substance: FLUCONAZOLE
     Dosage: UNK
     Route: 042
     Dates: start: 202008, end: 20200822
  10. FAMOTIDINE. [Concomitant]
     Active Substance: FAMOTIDINE
     Indication: PRODUCT USED FOR UNKNOWN INDICATION
     Dosage: UNK
  11. HYDROCORTISONE. [Suspect]
     Active Substance: HYDROCORTISONE
     Indication: PRODUCT USED FOR UNKNOWN INDICATION
     Dosage: 50 MG, QID
     Route: 042
     Dates: start: 20200824
  12. CEFAZOLIN [Suspect]
     Active Substance: CEFAZOLIN
     Indication: PRODUCT USED FOR UNKNOWN INDICATION
     Dosage: UNK
     Dates: start: 20200820, end: 20200821
  13. FLUCONAZOLE. [Suspect]
     Active Substance: FLUCONAZOLE
     Indication: PRODUCT USED FOR UNKNOWN INDICATION
     Dosage: UNK
     Route: 048
     Dates: start: 20200820
  14. BICILLIN L?A [Concomitant]
     Active Substance: PENICILLIN G BENZATHINE
     Indication: SYPHILIS
     Dosage: UNK 2.4 MU IM 3 DOSES

REACTIONS (33)
  - HIV infection [Fatal]
  - Vomiting [Unknown]
  - Blood bilirubin increased [Unknown]
  - Glomerular filtration rate decreased [Unknown]
  - Tonsillar hypertrophy [Unknown]
  - Acute kidney injury [Unknown]
  - Haemorrhage [Unknown]
  - Oral candidiasis [Unknown]
  - Anaemia [Unknown]
  - Hepatic function abnormal [Unknown]
  - Loss of consciousness [Unknown]
  - Leptospirosis [Unknown]
  - Altered state of consciousness [Unknown]
  - Haemoglobin decreased [Unknown]
  - Platelet count decreased [Unknown]
  - Lymphadenopathy [Unknown]
  - Multiple organ dysfunction syndrome [Fatal]
  - Meningitis [Unknown]
  - Pancytopenia [Unknown]
  - Lower respiratory tract infection [Unknown]
  - Pain [Unknown]
  - Oropharyngeal pain [Unknown]
  - Splenomegaly [Unknown]
  - Pyrexia [Fatal]
  - Upper gastrointestinal haemorrhage [Fatal]
  - Thrombocytopenia [Unknown]
  - Disseminated intravascular coagulation [Unknown]
  - Aspartate aminotransferase increased [Unknown]
  - Myalgia [Unknown]
  - Septic shock [Fatal]
  - Lymphoma [Fatal]
  - Alanine aminotransferase increased [Unknown]
  - Procalcitonin increased [Unknown]

NARRATIVE: CASE EVENT DATE: 202008
